FAERS Safety Report 9399419 (Version 1)
Quarter: 2013Q3

REPORT INFORMATION
  Report Type: Spontaneous
  Country: US (occurrence: US)
  Receive Date: 20130715
  Receipt Date: 20130715
  Transmission Date: 20140515
  Serious: Yes (Other)
  Sender: FDA-Public Use
  Company Number: US-TEVA-418221USA

PATIENT
  Age: 26 Year
  Sex: Female
  Weight: 66.74 kg

DRUGS (1)
  1. PARAGARD 380A [Suspect]
     Indication: CONTRACEPTION
     Route: 015
     Dates: start: 20130503, end: 20130531

REACTIONS (2)
  - Medical device complication [Recovered/Resolved]
  - Pelvic pain [Recovered/Resolved]
